FAERS Safety Report 7534480-X (Version None)
Quarter: 2011Q2

REPORT INFORMATION
  Report Type: 
  Country: None (occurrence: None)
  Receive Date: 20110609
  Receipt Date: 20110526
  Transmission Date: 20111010
  Serious: Yes (Hospitalization, Other)
  Sender: FDA-Public Use
  Company Number: PHEH2010US03417

PATIENT
  Sex: Female
  Weight: 59.864 kg

DRUGS (20)
  1. ROXICET [Concomitant]
  2. MORPHINE [Concomitant]
  3. PREVACID [Concomitant]
  4. ANCEF [Concomitant]
  5. HALDOL [Concomitant]
  6. CALCIUM CARBONATE [Concomitant]
  7. ALPRAZOLAM [Concomitant]
  8. AREDIA [Suspect]
  9. BENZODIAZEPINES [Suspect]
  10. PERCOCET [Concomitant]
  11. COLACE [Concomitant]
  12. ASPIRIN [Concomitant]
  13. PHENERGAN [Concomitant]
  14. ATIVAN [Concomitant]
  15. ANTIBIOTICS [Concomitant]
     Route: 042
  16. FENTANYL [Concomitant]
  17. LEXAPRO [Concomitant]
     Route: 048
  18. FEMARA [Concomitant]
  19. CELEBREX [Concomitant]
  20. FLAGYL [Concomitant]

REACTIONS (47)
  - METASTASES TO SPINE [None]
  - DISABILITY [None]
  - HALLUCINATION [None]
  - SPINAL OSTEOARTHRITIS [None]
  - BREAST CANCER [None]
  - ANXIETY [None]
  - OSTEOARTHRITIS [None]
  - REACTIVE PSYCHOSIS [None]
  - MASTICATION DISORDER [None]
  - OSTEOLYSIS [None]
  - METASTASES TO BONE [None]
  - BONE PAIN [None]
  - OSTEITIS [None]
  - TOOTH LOSS [None]
  - MITRAL VALVE INCOMPETENCE [None]
  - TRICUSPID VALVE INCOMPETENCE [None]
  - PATHOLOGICAL FRACTURE [None]
  - BONE NEOPLASM MALIGNANT [None]
  - PAIN [None]
  - OSTEORADIONECROSIS [None]
  - ARTHRITIS [None]
  - IRON DEFICIENCY ANAEMIA [None]
  - CONFUSIONAL STATE [None]
  - PAIN IN JAW [None]
  - SWELLING [None]
  - COMPRESSION FRACTURE [None]
  - IMPULSIVE BEHAVIOUR [None]
  - BONE LESION [None]
  - IMPAIRED HEALING [None]
  - OSTEOMYELITIS [None]
  - UPPER RESPIRATORY TRACT INFECTION [None]
  - PARANOIA [None]
  - ARTERIOSCLEROSIS [None]
  - OSTEONECROSIS OF JAW [None]
  - GASTROOESOPHAGEAL REFLUX DISEASE [None]
  - PANIC DISORDER [None]
  - DRUG WITHDRAWAL SYNDROME [None]
  - ADJUSTMENT DISORDER [None]
  - DYSPHAGIA [None]
  - LUNG DISORDER [None]
  - INJURY [None]
  - ANHEDONIA [None]
  - ORAL DISORDER [None]
  - INSOMNIA [None]
  - EXPOSED BONE IN JAW [None]
  - AFFECTIVE DISORDER [None]
  - WEIGHT DECREASED [None]
